FAERS Safety Report 12889188 (Version 2)
Quarter: 2016Q4

REPORT INFORMATION
  Report Type: Spontaneous
  Country: AU (occurrence: AU)
  Receive Date: 20161027
  Receipt Date: 20161129
  Transmission Date: 20170207
  Serious: Yes (Other)
  Sender: FDA-Public Use
  Company Number: AU-PFIZER INC-2016501860

PATIENT
  Age: 33 Year
  Sex: Female

DRUGS (8)
  1. ETOPOSIDE. [Suspect]
     Active Substance: ETOPOSIDE
     Dosage: UNK, CYCLIC (6 CYCLES)
  2. METHOTREXATE. [Suspect]
     Active Substance: METHOTREXATE
     Indication: MALIGNANT HYDATIDIFORM MOLE
     Dosage: EVERY TWO WEEKS
     Route: 042
  3. ACTINOMYCIN D [Suspect]
     Active Substance: DACTINOMYCIN
     Dosage: UNK, CYCLIC (6 CYCLES)
  4. ENOXAPARIN [Concomitant]
     Active Substance: ENOXAPARIN
     Indication: ANTICOAGULANT THERAPY
     Dosage: UNK
  5. CISPLATIN. [Suspect]
     Active Substance: CISPLATIN
     Indication: MALIGNANT HYDATIDIFORM MOLE
     Dosage: EVERY TWO WEEKS
  6. METHOTREXATE. [Suspect]
     Active Substance: METHOTREXATE
     Dosage: 1000 MG/M2, CYCLIC (6 CYCLES)
     Route: 042
  7. ACTINOMYCIN D [Suspect]
     Active Substance: DACTINOMYCIN
     Indication: MALIGNANT HYDATIDIFORM MOLE
     Dosage: EVERY TWO WEEKS
  8. ETOPOSIDE. [Suspect]
     Active Substance: ETOPOSIDE
     Indication: MALIGNANT HYDATIDIFORM MOLE
     Dosage: EVERY TWO WEEKS

REACTIONS (2)
  - Stenotrophomonas infection [Unknown]
  - Neutropenic sepsis [Unknown]
